FAERS Safety Report 4480447-8 (Version None)
Quarter: 2004Q4

REPORT INFORMATION
  Report Type: 
  Country: None (occurrence: None)
  Receive Date: 20041018
  Receipt Date: 20040930
  Transmission Date: 20050328
  Serious: Yes (Death)
  Sender: FDA-Public Use
  Company Number: DSA_25104_2004

PATIENT
  Age: 68 Year
  Sex: 0

DRUGS (3)
  1. LORAZEPAM [Suspect]
     Dosage: DF  PO
     Route: 048
  2. DESIPRAMINE HCL [Suspect]
     Dosage: DF     PO
     Route: 048
  3. ACETAMINOPHEN [Suspect]
     Dosage: DF   PO
     Route: 048

REACTIONS (2)
  - CARDIO-RESPIRATORY ARREST [None]
  - COMPLETED SUICIDE [None]
